FAERS Safety Report 4563596-5 (Version None)
Quarter: 2005Q1

REPORT INFORMATION
  Report Type: 
  Country: None (occurrence: None)
  Receive Date: 20050128
  Receipt Date: 20041103
  Transmission Date: 20050727
  Serious: No
  Sender: FDA-Public Use
  Company Number: US-GLAXOSMITHKLINE-A0532540A

PATIENT
  Age: 18 Year
  Sex: Female

DRUGS (4)
  1. WELLBUTRIN [Suspect]
     Indication: DEPRESSION
     Route: 048
     Dates: start: 20041001
  2. VICODIN [Concomitant]
  3. AUGMENTIN [Concomitant]
  4. MERIDIA [Concomitant]

REACTIONS (1)
  - DEPRESSION [None]
